FAERS Safety Report 19912589 (Version 1)
Quarter: 2021Q4

REPORT INFORMATION
  Report Type: Spontaneous
  Country: US (occurrence: US)
  Receive Date: 20211004
  Receipt Date: 20211004
  Transmission Date: 20220303
  Serious: No
  Sender: FDA-Public Use
  Company Number: US-SANOFI-00768656

PATIENT
  Age: 76 Year
  Sex: Female

DRUGS (1)
  1. NASACORT [Suspect]
     Active Substance: TRIAMCINOLONE ACETONIDE
     Dosage: 2 DF, BID
     Route: 045

REACTIONS (1)
  - Off label use [Unknown]
